FAERS Safety Report 4498722-X (Version None)
Quarter: 2004Q4

REPORT INFORMATION
  Report Type: 
  Country: None (occurrence: None)
  Receive Date: 20041108
  Receipt Date: 20041029
  Transmission Date: 20050328
  Serious: Yes (Other)
  Sender: FDA-Public Use
  Company Number: 2001-02-0671

PATIENT
  Age: 66 Year
  Sex: Female
  Weight: 124.7392 kg

DRUGS (11)
  1. INTRON A [Suspect]
     Indication: MALIGNANT MELANOMA STAGE III
     Dosage: SEE IMAGE
     Route: 042
     Dates: start: 20001211, end: 20010105
  2. INTRON A [Suspect]
     Indication: MALIGNANT MELANOMA STAGE III
     Dosage: SEE IMAGE
     Route: 042
     Dates: start: 20010108
  3. PREMPRO [Concomitant]
  4. IBUPROFEN [Concomitant]
  5. VITAMIN E [Concomitant]
  6. NIACIN [Concomitant]
  7. ATENOLOL [Concomitant]
  8. MEVACOR [Concomitant]
  9. HYDROCHLOROTHIAZIDE [Concomitant]
  10. ASPIRIN [Concomitant]
  11. KEFLEX [Concomitant]

REACTIONS (4)
  - FATIGUE [None]
  - HYPERCHOLESTEROLAEMIA [None]
  - HYPERTRIGLYCERIDAEMIA [None]
  - VERY LOW DENSITY LIPOPROTEIN INCREASED [None]
